FAERS Safety Report 14415187 (Version 1)
Quarter: 2018Q1

REPORT INFORMATION
  Report Type: Spontaneous
  Country: US (occurrence: US)
  Receive Date: 20180118
  Receipt Date: 20180118
  Transmission Date: 20180509
  Serious: Yes (Hospitalization)
  Sender: FDA-Public Use
  Company Number: None

PATIENT
  Age: 19 Year
  Sex: Female

DRUGS (3)
  1. SODIUM NITRATE. [Suspect]
     Active Substance: SODIUM NITRATE
     Indication: SUICIDE ATTEMPT
     Route: 048
     Dates: start: 20171112, end: 20171112
  2. FLUOXETINE [Concomitant]
     Active Substance: FLUOXETINE HYDROCHLORIDE
  3. ARIPIPRAZOLE. [Concomitant]
     Active Substance: ARIPIPRAZOLE

REACTIONS (9)
  - Overdose [None]
  - Pupil fixed [None]
  - Loss of consciousness [None]
  - Pallor [None]
  - Pupils unequal [None]
  - Blood lactic acid increased [None]
  - Unresponsive to stimuli [None]
  - Vomiting [None]
  - Methaemoglobinaemia [None]

NARRATIVE: CASE EVENT DATE: 20171112
